FAERS Safety Report 15391897 (Version 1)
Quarter: 2018Q3

REPORT INFORMATION
  Report Type: Spontaneous
  Country: US (occurrence: US)
  Receive Date: 20180917
  Receipt Date: 20180917
  Transmission Date: 20181010
  Serious: No
  Sender: FDA-Public Use
  Company Number: US-BAUSCH-BL-2017-028480

PATIENT
  Sex: Female

DRUGS (1)
  1. TROPICAMIDE OPHTHALMIC SOLUTION USP 0.5% [Suspect]
     Active Substance: TROPICAMIDE
     Indication: PRODUCT USED FOR UNKNOWN INDICATION
     Route: 047
     Dates: start: 20170923, end: 20170923

REACTIONS (4)
  - Eye irritation [Not Recovered/Not Resolved]
  - Headache [Unknown]
  - Eye pain [Not Recovered/Not Resolved]
  - Abnormal sensation in eye [Not Recovered/Not Resolved]

NARRATIVE: CASE EVENT DATE: 20170923
